FAERS Safety Report 4888720-6 (Version None)
Quarter: 2005Q4

REPORT INFORMATION
  Report Type: 
  Country: None (occurrence: None)
  Receive Date: 20051216
  Receipt Date: 20050906
  Transmission Date: 20060501
  Serious: No
  Sender: FDA-Public Use
  Company Number: USA0509107257

PATIENT
  Age: 66 Year
  Sex: Male
  Weight: 120 kg

DRUGS (7)
  1. CIALIS [Suspect]
     Indication: ERECTILE DYSFUNCTION
     Dosage: 20 MG/1 AS NEEDED
     Dates: start: 20050301
  2. ALLOPURINOL [Concomitant]
  3. PROGRAF [Concomitant]
  4. LASIX [Concomitant]
  5. MAGNESIUM HYDROXIDE TAB [Concomitant]
  6. POTASSIUM PHOSPHATES [Concomitant]
  7. DYNACIRC [Concomitant]

REACTIONS (1)
  - THERAPEUTIC RESPONSE DECREASED [None]
